FAERS Safety Report 23950506 (Version 2)
Quarter: 2024Q2

REPORT INFORMATION
  Report Type: Report from Study
  Country: US (occurrence: US)
  Receive Date: 20240607
  Receipt Date: 20240620
  Transmission Date: 20240716
  Serious: Yes (Hospitalization)
  Sender: FDA-Public Use
  Company Number: US-Stemline Therapeutics, Inc.-2024ST003489

PATIENT
  Age: 83 Year
  Sex: Female

DRUGS (1)
  1. ORSERDU [Suspect]
     Active Substance: ELACESTRANT
     Indication: Product used for unknown indication
     Dosage: DAY TO DAY OF A DAY CYCLE
     Route: 048
     Dates: start: 20240506

REACTIONS (2)
  - Dehydration [Not Recovered/Not Resolved]
  - Eating disorder [Not Recovered/Not Resolved]
